FAERS Safety Report 8967974 (Version 1)
Quarter: 2012Q4

REPORT INFORMATION
  Report Type: Spontaneous
  Country: DE (occurrence: None)
  Receive Date: 20121210
  Receipt Date: 20121210
  Transmission Date: 20130627
  Serious: Yes (Hospitalization)
  Sender: FDA-Public Use
  Company Number: AUR-APL-2012-05054

PATIENT
  Sex: Male

DRUGS (4)
  1. MIRTAZAPINE (MIRTAZAPINE) [Suspect]
     Route: 048
     Dates: start: 20111101, end: 20120402
  2. MIRTAZAPINE (MIRTAZAPINE) [Suspect]
     Route: 048
     Dates: start: 20120403, end: 20120411
  3. MIRTAZAPINE (MIRTAZAPINE) [Suspect]
     Route: 048
     Dates: start: 20120412, end: 20120416
  4. MELPERON (MELPERONE HYDROCHLORIDE) [Concomitant]

REACTIONS (2)
  - Arthralgia [None]
  - Myalgia [None]
